FAERS Safety Report 22520367 (Version 1)
Quarter: 2023Q2

REPORT INFORMATION
  Report Type: Spontaneous
  Country: JP (occurrence: JP)
  Receive Date: 20230605
  Receipt Date: 20230605
  Transmission Date: 20230721
  Serious: Yes (Hospitalization, Other)
  Sender: FDA-Public Use
  Company Number: JP-GLAXOSMITHKLINE-JP2023JPN076161

PATIENT

DRUGS (2)
  1. MEPOLIZUMAB [Suspect]
     Active Substance: MEPOLIZUMAB
     Dosage: UNK
     Route: 058
  2. FORTEO [Suspect]
     Active Substance: TERIPARATIDE
     Dosage: UNK
     Route: 058

REACTIONS (8)
  - Injection site infection [Recovering/Resolving]
  - Nocardiosis [Recovering/Resolving]
  - Muscle abscess [Recovering/Resolving]
  - Abdominal pain upper [Unknown]
  - Pain in extremity [Unknown]
  - Abdominal wall abscess [Recovering/Resolving]
  - Abscess limb [Recovering/Resolving]
  - Shock [Unknown]
